FAERS Safety Report 8349147-8 (Version None)
Quarter: 2012Q2

REPORT INFORMATION
  Report Type: 
  Country: None (occurrence: None)
  Receive Date: 20120510
  Receipt Date: 20120502
  Transmission Date: 20120825
  Serious: Yes (Hospitalization)
  Sender: FDA-Public Use
  Company Number: US-BAYER-2011-032014

PATIENT
  Age: 34 Year
  Sex: Female

DRUGS (6)
  1. IBUPROFEN [Concomitant]
     Indication: HEADACHE
     Dosage: 200 MG, UNK
     Dates: start: 19850101
  2. VITAMIN C [Concomitant]
     Dosage: UNK UNK, PRN
     Dates: start: 19900101
  3. ZOLOFT [Concomitant]
     Indication: DEPRESSION
     Dosage: 100 MG, QD
     Dates: start: 20010101
  4. YASMIN [Suspect]
     Indication: CONTRACEPTION
     Dosage: UNK
     Dates: start: 20010101, end: 20080201
  5. METFORMIN HCL [Concomitant]
     Indication: GLUCOSE TOLERANCE IMPAIRED
     Dosage: UNK
     Dates: start: 20060301
  6. ONE-A-DAY [MINERALS NOS,VITAMINS NOS] [Concomitant]
     Dosage: UNK UNK, QD
     Dates: start: 20070501

REACTIONS (6)
  - INJURY [None]
  - EMOTIONAL DISTRESS [None]
  - PAIN [None]
  - BACK PAIN [None]
  - MYOCARDIAL INFARCTION [None]
  - CHEST PAIN [None]
